FAERS Safety Report 13145505 (Version 1)
Quarter: 2017Q1

REPORT INFORMATION
  Report Type: Spontaneous
  Country: US (occurrence: US)
  Receive Date: 20170124
  Receipt Date: 20170124
  Transmission Date: 20170428
  Serious: No
  Sender: FDA-Public Use
  Company Number: US-MYLANLABS-2016M1029929

PATIENT
  Age: 56 Year
  Sex: Female

DRUGS (4)
  1. LETROZOLE. [Suspect]
     Active Substance: LETROZOLE
     Indication: OESTROGENIC EFFECT
     Dosage: UNK
     Dates: start: 2014, end: 20160104
  2. LEVOTHYROXINE SODIUM. [Concomitant]
     Active Substance: LEVOTHYROXINE SODIUM
     Dosage: UNK
     Dates: start: 20100609
  3. AROMASIN [Suspect]
     Active Substance: EXEMESTANE
     Indication: OESTROGENIC EFFECT
     Dosage: 25 MG, QD
     Dates: start: 20160105, end: 201603
  4. LETROZOLE. [Suspect]
     Active Substance: LETROZOLE
     Dosage: UNK
     Dates: start: 201603

REACTIONS (5)
  - Fatigue [Recovering/Resolving]
  - Liver function test increased [Not Recovered/Not Resolved]
  - Arthralgia [Not Recovered/Not Resolved]
  - Joint stiffness [Not Recovered/Not Resolved]
  - Feeling abnormal [Not Recovered/Not Resolved]

NARRATIVE: CASE EVENT DATE: 201501
